FAERS Safety Report 6404602-2 (Version None)
Quarter: 2009Q4

REPORT INFORMATION
  Report Type: 
  Country: None (occurrence: None)
  Receive Date: 20091016
  Receipt Date: 20091009
  Transmission Date: 20100525
  Serious: Yes (Other)
  Sender: FDA-Public Use
  Company Number: JP-ABBOTT-09P-087-0600261-00

PATIENT
  Age: 1 Year
  Sex: Female
  Weight: 10 kg

DRUGS (3)
  1. SEVOFLURANE [Suspect]
     Indication: ANAESTHESIA
  2. ROCURONIUM BROMIDE [Concomitant]
     Indication: ANAESTHESIA
  3. FENTANYL [Concomitant]
     Indication: ANAESTHESIA

REACTIONS (1)
  - TRACHEOMALACIA [None]
